FAERS Safety Report 21450356 (Version 1)
Quarter: 2022Q4

REPORT INFORMATION
  Report Type: Spontaneous
  Country: US (occurrence: None)
  Receive Date: 20221012
  Receipt Date: 20221012
  Transmission Date: 20230113
  Serious: Yes (Hospitalization)
  Sender: FDA-Public Use
  Company Number: None

PATIENT
  Age: 40 Year
  Sex: Male

DRUGS (6)
  1. LENALIDOMIDE [Suspect]
     Active Substance: LENALIDOMIDE
     Indication: Plasma cell myeloma
     Dosage: TAKE 1 CAPSULE (10 MG) BY MOUTH DAILY
     Route: 048
     Dates: start: 20220629
  2. ASPIRIN LOW TAB EC [Concomitant]
  3. OXYCODONE TAB [Concomitant]
  4. REVLIMID CAP [Concomitant]
  5. SULFAMETHOX POW [Concomitant]
  6. VALACYCLOVIR TAB [Concomitant]

REACTIONS (2)
  - Legionella infection [None]
  - Therapy interrupted [None]

NARRATIVE: CASE EVENT DATE: 20220815
